FAERS Safety Report 10957540 (Version 2)
Quarter: 2015Q2

REPORT INFORMATION
  Report Type: Report from Study
  Country: ES (occurrence: ES)
  Receive Date: 20150326
  Receipt Date: 20150409
  Transmission Date: 20150821
  Serious: Yes (Hospitalization)
  Sender: FDA-Public Use
  Company Number: ES-CELGENE-ESP-2015034530

PATIENT
  Age: 77 Year
  Sex: Female
  Weight: 53 kg

DRUGS (2)
  1. AZACITIDINE INJECTABLE [Suspect]
     Active Substance: AZACITIDINE
     Indication: MYELODYSPLASTIC SYNDROME
     Route: 058
     Dates: start: 20140324
  2. AZACITIDINE INJECTABLE [Suspect]
     Active Substance: AZACITIDINE
     Route: 058
     Dates: start: 20140811, end: 20140818

REACTIONS (4)
  - Subarachnoid haemorrhage [Recovered/Resolved with Sequelae]
  - Cellulitis [Recovered/Resolved]
  - Febrile neutropenia [Recovered/Resolved with Sequelae]
  - Skin ulcer [Recovered/Resolved]

NARRATIVE: CASE EVENT DATE: 20140719
